FAERS Safety Report 15239303 (Version 2)
Quarter: 2018Q3

REPORT INFORMATION
  Report Type: Spontaneous
  Country: JP (occurrence: JP)
  Receive Date: 20180803
  Receipt Date: 20180830
  Transmission Date: 20181010
  Serious: Yes (Hospitalization)
  Sender: FDA-Public Use
  Company Number: JP-OTSUKA-2018_018417

PATIENT
  Age: 63 Year
  Sex: Male

DRUGS (2)
  1. LEPETAN [Suspect]
     Active Substance: BUPRENORPHINE HYDROCHLORIDE
     Indication: PAIN
     Dosage: 8 DF, DAILY (0.2 MG AT A DAILY DOSE OF 8 AMPOULES)
     Route: 065
     Dates: start: 20180620, end: 201806
  2. LEPETAN [Suspect]
     Active Substance: BUPRENORPHINE HYDROCHLORIDE
     Dosage: 1.6MG DAILY
     Route: 042
     Dates: start: 201806, end: 20180627

REACTIONS (3)
  - Off label use [Recovered/Resolved]
  - Overdose [Recovered/Resolved]
  - Hospitalisation [Unknown]

NARRATIVE: CASE EVENT DATE: 201806
